FAERS Safety Report 20414148 (Version 1)
Quarter: 2022Q1

REPORT INFORMATION
  Report Type: Spontaneous
  Country: US (occurrence: US)
  Receive Date: 20220201
  Receipt Date: 20220201
  Transmission Date: 20220424
  Serious: Yes (Other)
  Sender: FDA-Public Use
  Company Number: US-ALKEM LABORATORIES LIMITED-US-ALKEM-2022-00504

PATIENT
  Age: 58 Year
  Sex: Female
  Weight: 63.492 kg

DRUGS (3)
  1. AMLODIPINE BESYLATE [Suspect]
     Active Substance: AMLODIPINE BESYLATE
     Indication: Hypertension
     Dosage: 1 DOSAGE FORM
     Route: 048
     Dates: start: 202110
  2. TIZANIDINE [Suspect]
     Active Substance: TIZANIDINE
     Indication: Muscle relaxant therapy
     Dosage: 2 MILLIGRAM, PRN
     Route: 048
  3. FLEXERIL [Concomitant]
     Active Substance: CYCLOBENZAPRINE HYDROCHLORIDE
     Indication: Product used for unknown indication
     Dosage: 2 MILLIGRAM
     Route: 048

REACTIONS (5)
  - Tongue discolouration [Not Recovered/Not Resolved]
  - Haemoptysis [Not Recovered/Not Resolved]
  - Choking [Not Recovered/Not Resolved]
  - Burning sensation [Not Recovered/Not Resolved]
  - Tongue discomfort [Not Recovered/Not Resolved]

NARRATIVE: CASE EVENT DATE: 20211001
